FAERS Safety Report 4908450-1 (Version None)
Quarter: 2006Q1

REPORT INFORMATION
  Report Type: 
  Country: None (occurrence: None)
  Receive Date: 20060210
  Receipt Date: 20050630
  Transmission Date: 20060701
  Serious: No
  Sender: FDA-Public Use
  Company Number: US-GLAXOSMITHKLINE-A0564993A

PATIENT
  Sex: Female

DRUGS (1)
  1. PAXIL CR [Suspect]
     Indication: PANIC ATTACK
     Dosage: 25MG UNKNOWN
     Route: 048

REACTIONS (2)
  - DIZZINESS [None]
  - DRUG WITHDRAWAL SYNDROME [None]
